FAERS Safety Report 5316303-2 (Version None)
Quarter: 2007Q2

REPORT INFORMATION
  Report Type: 
  Country: None (occurrence: None)
  Receive Date: 20070430
  Receipt Date: 20070420
  Transmission Date: 20071010
  Serious: Yes (Other)
  Sender: FDA-Public Use
  Company Number: GXKR2007US03612

PATIENT
  Age: 65 Year
  Sex: Female

DRUGS (5)
  1. FENTANYL G-FETA+PATCH(FENTANYL) PATCH, 25UG/HR [Suspect]
     Indication: BACK PAIN
     Dosage: 25 UG, QH, TRANSDERMAL
     Route: 062
  2. CITALOPRAM HYDROBROMIDE [Suspect]
     Indication: DEPRESSION
  3. RABEPRAZOLE SODIUM [Concomitant]
  4. TOLTERODINE TARTRATE [Concomitant]
  5. HYDROCODONE (HYDROCODONE) [Concomitant]

REACTIONS (5)
  - AGGRESSION [None]
  - DRUG INTERACTION [None]
  - GAIT DISTURBANCE [None]
  - SEROTONIN SYNDROME [None]
  - TREMOR [None]
